FAERS Safety Report 21686848 (Version 2)
Quarter: 2022Q4

REPORT INFORMATION
  Report Type: Spontaneous
  Country: IT (occurrence: IT)
  Receive Date: 20221206
  Receipt Date: 20221207
  Transmission Date: 20230112
  Serious: No
  Sender: FDA-Public Use
  Company Number: IT-009507513-2212ITA001554

PATIENT
  Sex: Female

DRUGS (1)
  1. LAGEVRIO [Suspect]
     Active Substance: MOLNUPIRAVIR
     Dosage: UNK

REACTIONS (3)
  - Poor quality product administered [Unknown]
  - Product adhesion issue [Unknown]
  - No adverse event [Unknown]
